FAERS Safety Report 6924972-6 (Version None)
Quarter: 2010Q3

REPORT INFORMATION
  Report Type: 
  Country: None (occurrence: None)
  Receive Date: 20100816
  Receipt Date: 20100809
  Transmission Date: 20110219
  Serious: Yes (Hospitalization)
  Sender: FDA-Public Use
  Company Number: US-JNJFOC-20100403046

PATIENT
  Sex: Female
  Weight: 80.74 kg

DRUGS (13)
  1. FENTANYL CITRATE [Suspect]
     Indication: PAIN IN EXTREMITY
     Route: 062
  2. FENTANYL CITRATE [Suspect]
     Route: 062
  3. FENTANYL CITRATE [Suspect]
     Indication: BACK PAIN
     Route: 062
  4. FENTANYL CITRATE [Suspect]
     Route: 062
  5. FENTANYL CITRATE [Suspect]
     Indication: SURGERY
     Route: 062
  6. FENTANYL CITRATE [Suspect]
     Route: 062
  7. FENTANYL CITRATE [Suspect]
     Route: 062
  8. FENTANYL CITRATE [Suspect]
     Route: 062
  9. FENTANYL CITRATE [Suspect]
     Route: 062
  10. DURAGESIC-100 [Suspect]
     Indication: PRODUCT USED FOR UNKNOWN INDICATION
     Route: 062
  11. ATENOLOL [Concomitant]
     Indication: HYPERTENSION
     Route: 048
  12. LORTAB [Concomitant]
     Indication: PAIN
     Dosage: 10-660-MGS
     Route: 048
  13. NASONEX [Concomitant]
     Indication: MULTIPLE ALLERGIES
     Route: 045

REACTIONS (4)
  - INFLUENZA [None]
  - MASS [None]
  - PAIN [None]
  - PRODUCT QUALITY ISSUE [None]
